FAERS Safety Report 14627659 (Version 1)
Quarter: 2018Q1

REPORT INFORMATION
  Report Type: Other
  Country: CN (occurrence: CN)
  Receive Date: 20180312
  Receipt Date: 20180312
  Transmission Date: 20180509
  Serious: Yes (Other)
  Sender: FDA-Public Use
  Company Number: CN-GEHC-2018CSU001001

PATIENT

DRUGS (1)
  1. VISIPAQUE [Suspect]
     Active Substance: IODIXANOL
     Indication: PRODUCT USED FOR UNKNOWN INDICATION
     Dosage: 1 ML, SINGLE
     Route: 023
     Dates: start: 20171107, end: 20171107

REACTIONS (2)
  - Off label use [Recovered/Resolved]
  - Skin reaction [Recovering/Resolving]

NARRATIVE: CASE EVENT DATE: 20171107
